FAERS Safety Report 21110635 (Version 1)
Quarter: 2022Q3

REPORT INFORMATION
  Report Type: Spontaneous
  Country: US (occurrence: None)
  Receive Date: 20220720
  Receipt Date: 20220720
  Transmission Date: 20221027
  Serious: Yes (Other)
  Sender: FDA-Public Use
  Company Number: None

PATIENT
  Age: 40 Year
  Sex: Male
  Weight: 81 kg

DRUGS (3)
  1. LAGEVRIO [Suspect]
     Active Substance: MOLNUPIRAVIR
     Indication: COVID-19
  2. PHENYTOIN [Concomitant]
     Active Substance: PHENYTOIN
  3. LAMOTRIGINE [Concomitant]
     Active Substance: LAMOTRIGINE

REACTIONS (4)
  - Muscle spasms [None]
  - Muscle twitching [None]
  - Anticonvulsant drug level increased [None]
  - Hyperkalaemia [None]

NARRATIVE: CASE EVENT DATE: 20220720
